FAERS Safety Report 12481122 (Version 2)
Quarter: 2016Q3

REPORT INFORMATION
  Report Type: Spontaneous
  Country: CN (occurrence: CN)
  Receive Date: 20160620
  Receipt Date: 20160728
  Transmission Date: 20161109
  Serious: Yes (Other)
  Sender: FDA-Public Use
  Company Number: CN-BAYER-2016-118292

PATIENT
  Age: 38 Year
  Sex: Female

DRUGS (10)
  1. SODIUM CHLORIDE. [Concomitant]
     Active Substance: SODIUM CHLORIDE
     Dosage: UNK
     Dates: start: 20160502, end: 20160502
  2. MIRENA [Suspect]
     Active Substance: LEVONORGESTREL
     Indication: CONTRACEPTION
     Dosage: 20 MCG/24HR, CONT
     Route: 015
     Dates: start: 20160502, end: 20160610
  3. NIFURATEL [Concomitant]
     Active Substance: NIFURATEL
     Dosage: 0.2 G, TID
     Route: 048
     Dates: start: 2016, end: 2016
  4. METRONIDAZOLE. [Concomitant]
     Active Substance: METRONIDAZOLE
     Dosage: 200 ML, QD
     Route: 061
     Dates: start: 20160502, end: 20160502
  5. CARBOPROST [Concomitant]
     Active Substance: CARBOPROST
     Dosage: 0.5 MG, QD
     Route: 061
     Dates: start: 20160502, end: 20160502
  6. PROPOFOL. [Concomitant]
     Active Substance: PROPOFOL
     Dosage: 0.2 G, QD
     Route: 042
     Dates: start: 20160502, end: 20160502
  7. DEZOCINE [Concomitant]
     Active Substance: DEZOCINE
     Dosage: 5 MG, QD
     Route: 042
     Dates: start: 20160502, end: 20160502
  8. OXYTOCIN. [Concomitant]
     Active Substance: OXYTOCIN
     Dosage: 20 IU, QD
     Route: 019
     Dates: start: 2016, end: 2016
  9. NYSTATIN. [Concomitant]
     Active Substance: NYSTATIN
     Dosage: 0.5 G, QD
     Route: 061
     Dates: start: 20160502, end: 20160504
  10. OXYTOCIN. [Concomitant]
     Active Substance: OXYTOCIN
     Dosage: 20 IU, QD
     Route: 041
     Dates: start: 20160502, end: 20160502

REACTIONS (10)
  - Dermatitis [None]
  - Vaginal discharge [None]
  - Uterine cervical erosion [None]
  - Hemianaesthesia [Recovered/Resolved]
  - Abdominal pain [Recovered/Resolved]
  - Urticaria [Recovering/Resolving]
  - Skin infection [None]
  - Chest discomfort [None]
  - Vaginal haemorrhage [None]
  - Asthenia [None]

NARRATIVE: CASE EVENT DATE: 201605
